FAERS Safety Report 6312454-4 (Version None)
Quarter: 2009Q3

REPORT INFORMATION
  Report Type: 
  Country: None (occurrence: None)
  Receive Date: 20090813
  Receipt Date: 20090803
  Transmission Date: 20100115
  Serious: Yes (Hospitalization)
  Sender: FDA-Public Use
  Company Number: 2008AL004425

PATIENT
  Age: 65 Year
  Sex: Female
  Weight: 81.6475 kg

DRUGS (30)
  1. DIGOXIN [Suspect]
     Indication: ARRHYTHMIA
     Dosage: 0.25MG, DAILY, PO
     Route: 048
  2. LANOXIN [Concomitant]
  3. NITROGLYCERIN [Concomitant]
  4. TOPROL-XL [Concomitant]
  5. LISINOPRIL [Concomitant]
  6. LEVOTHYROXINE [Concomitant]
  7. HUMALOG [Concomitant]
  8. LANTUS [Concomitant]
  9. BUMEX [Concomitant]
  10. LOVASTATIN [Concomitant]
  11. CARAFATE [Concomitant]
  12. GABAPENTIN [Concomitant]
  13. LEVAQUIN [Concomitant]
  14. DARVOCET [Concomitant]
  15. IMDUR [Concomitant]
  16. SYNTHROID [Concomitant]
  17. OMEPRAZOLE [Concomitant]
  18. TRIAGABINE [Concomitant]
  19. METOPROLOL [Concomitant]
  20. NOVOLIN R [Concomitant]
  21. METFORMIN [Concomitant]
  22. SUCRALFATE [Concomitant]
  23. TEMAZEPAM [Concomitant]
  24. GLYNASE [Concomitant]
  25. MEXITIL [Concomitant]
  26. GLYNASE [Concomitant]
  27. MONOPRIL [Concomitant]
  28. QUINIDEX [Concomitant]
  29. ASPIRIN [Concomitant]
  30. QUINNIE [Concomitant]

REACTIONS (16)
  - ASTHENIA [None]
  - CARDIAC DISORDER [None]
  - COUGH [None]
  - DIARRHOEA [None]
  - DIZZINESS [None]
  - DYSPNOEA [None]
  - HEADACHE [None]
  - HEART RATE DECREASED [None]
  - HYPERKALAEMIA [None]
  - MULTIPLE INJURIES [None]
  - NAUSEA [None]
  - OEDEMA PERIPHERAL [None]
  - PYREXIA [None]
  - RENAL FAILURE [None]
  - THERAPEUTIC AGENT TOXICITY [None]
  - VOMITING [None]
